FAERS Safety Report 8108696-8 (Version None)
Quarter: 2012Q1

REPORT INFORMATION
  Report Type: 
  Country: None (occurrence: None)
  Receive Date: 20120202
  Receipt Date: 20120131
  Transmission Date: 20120608
  Serious: Yes (Other)
  Sender: FDA-Public Use
  Company Number: US-PFIZER INC-2012015255

PATIENT
  Sex: Male
  Weight: 87 kg

DRUGS (6)
  1. PREVACID [Concomitant]
     Indication: DYSPEPSIA
     Dosage: 15 MG, DAILY
  2. VIAGRA [Concomitant]
     Dosage: 50 MG, AS NEEDED
  3. CHANTIX [Suspect]
     Indication: SMOKING CESSATION THERAPY
     Dosage: UNK
     Route: 048
     Dates: start: 20110901, end: 20111216
  4. ACETYLSALICYLIC ACID [Concomitant]
     Dosage: UNK
  5. AMBIEN [Concomitant]
     Dosage: 10 MG, DAILY
  6. CHANTIX [Suspect]
     Dosage: 1 MG, 2X/DAY

REACTIONS (5)
  - CONVULSION [None]
  - ABNORMAL DREAMS [None]
  - DEPRESSION [None]
  - INSOMNIA [None]
  - MOOD SWINGS [None]
